FAERS Safety Report 10984330 (Version 1)
Quarter: 2015Q2

REPORT INFORMATION
  Report Type: Spontaneous
  Country: US (occurrence: US)
  Receive Date: 20150403
  Receipt Date: 20150403
  Transmission Date: 20150821
  Serious: Yes (Other)
  Sender: FDA-Public Use
  Company Number: US-GLAXOSMITHKLINE-US2015GSK030786

PATIENT
  Sex: Female

DRUGS (1)
  1. BREO ELLIPTA [Suspect]
     Active Substance: FLUTICASONE FUROATE\VILANTEROL TRIFENATATE
     Indication: BRONCHITIS
     Dosage: UNK, U
     Route: 065
     Dates: start: 2014

REACTIONS (4)
  - Dysphonia [Unknown]
  - Product use issue [Unknown]
  - Glaucoma [Not Recovered/Not Resolved]
  - Tremor [Unknown]
